FAERS Safety Report 6135589-8 (Version None)
Quarter: 2009Q1

REPORT INFORMATION
  Report Type: 
  Country: None (occurrence: None)
  Receive Date: 20090327
  Receipt Date: 20090316
  Transmission Date: 20090719
  Serious: Yes (Other)
  Sender: FDA-Public Use
  Company Number: SE-PFIZER INC-2009174695

PATIENT

DRUGS (5)
  1. CHAMPIX [Suspect]
     Indication: SMOKING CESSATION THERAPY
     Dosage: UNKNOWN
     Dates: start: 20081217, end: 20081223
  2. TRAMADOL [Concomitant]
     Indication: PAIN
     Dosage: 100-300 MG, PRN, DAILY
     Dates: start: 20020101
  3. ACETAMINOPHEN [Concomitant]
     Indication: PAIN
     Dosage: 1-4 G, PRN, DAILY
     Dates: start: 20020101
  4. SYMBICORT [Concomitant]
     Indication: ASTHMA
     Dosage: 1-3 INHALATIONS, DAILY
     Route: 055
  5. VENTOLIN [Concomitant]
     Indication: ASTHMA
     Dosage: UNKNOWN

REACTIONS (2)
  - EPILEPSY [None]
  - LOSS OF CONSCIOUSNESS [None]
